FAERS Safety Report 25336611 (Version 2)
Quarter: 2025Q2

REPORT INFORMATION
  Report Type: Spontaneous
  Country: US (occurrence: US)
  Receive Date: 20250520
  Receipt Date: 20250520
  Transmission Date: 20250716
  Serious: No
  Sender: LEO PHARM
  Company Number: US-LEO Pharma-379317

PATIENT
  Age: 32 Year
  Sex: Male

DRUGS (1)
  1. ADBRY [Suspect]
     Active Substance: TRALOKINUMAB-LDRM
     Indication: Dermatitis atopic
     Dosage: 150MG 2 INJECTIONS EVERY 4 WEEKS
     Route: 058

REACTIONS (2)
  - Dermatitis atopic [Unknown]
  - Rash [Unknown]
